FAERS Safety Report 6403660-9 (Version None)
Quarter: 2009Q4

REPORT INFORMATION
  Report Type: 
  Country: None (occurrence: None)
  Receive Date: 20091016
  Receipt Date: 20091009
  Transmission Date: 20100525
  Serious: No
  Sender: FDA-Public Use
  Company Number: US-BAYER-200935943NA

PATIENT
  Age: 31 Year
  Sex: Female
  Weight: 113 kg

DRUGS (4)
  1. YAZ [Suspect]
     Indication: MENORRHAGIA
     Dates: start: 20090828, end: 20090901
  2. MEDROXYPROGESTERONE [Concomitant]
     Dates: start: 20030101
  3. LEVOTHYROXINE SODIUM [Concomitant]
  4. ALLEGRA [Concomitant]

REACTIONS (3)
  - DYSACUSIS [None]
  - EUSTACHIAN TUBE PATULOUS [None]
  - MENORRHAGIA [None]
